FAERS Safety Report 13581886 (Version 3)
Quarter: 2018Q1

REPORT INFORMATION
  Report Type: Report from Study
  Country: US (occurrence: US)
  Receive Date: 20170525
  Receipt Date: 20180205
  Transmission Date: 20180508
  Serious: Yes (Death)
  Sender: FDA-Public Use
  Company Number: US-ASTRAZENECA-2017SE50179

PATIENT
  Age: 62 Year
  Sex: Female
  Weight: 173.5 kg

DRUGS (10)
  1. NORMAL SALINE [Concomitant]
     Active Substance: SODIUM CHLORIDE
     Dosage: 21 ML/H
  2. AZD2014 [Suspect]
     Active Substance: INVESTIGATIONAL PRODUCT
     Indication: BREAST CANCER
     Route: 048
     Dates: start: 20170505
  3. LACTULOSE. [Concomitant]
     Active Substance: LACTULOSE
     Dosage: PRN
  4. DILAUDID [Concomitant]
     Active Substance: HYDROMORPHONE HYDROCHLORIDE
     Route: 048
  5. MIRALAX [Concomitant]
     Active Substance: POLYETHYLENE GLYCOL 3350
     Dosage: PRN
  6. SENOKOT [Concomitant]
     Active Substance: SENNOSIDES
     Dosage: PRN
  7. AZD2281 [Suspect]
     Active Substance: OLAPARIB
     Indication: BREAST CANCER
     Route: 048
     Dates: start: 20170505
  8. SPIRONOLACTONE. [Concomitant]
     Active Substance: SPIRONOLACTONE
     Route: 048
  9. FENTANYL. [Concomitant]
     Active Substance: FENTANYL
     Dosage: 12 UG/H Q72H
  10. DILAUDID [Concomitant]
     Active Substance: HYDROMORPHONE HYDROCHLORIDE
     Dosage: 0.5 MG, Q2H PRN
     Route: 042

REACTIONS (3)
  - Vomiting [Fatal]
  - Nausea [Fatal]
  - Multiple organ dysfunction syndrome [Fatal]

NARRATIVE: CASE EVENT DATE: 20170509
